FAERS Safety Report 21702020 (Version 1)
Quarter: 2022Q4

REPORT INFORMATION
  Report Type: Spontaneous
  Country: US (occurrence: US)
  Receive Date: 20221208
  Receipt Date: 20221208
  Transmission Date: 20230113
  Serious: No
  Sender: FDA-Public Use
  Company Number: US-Calliditas-2022CAL00578

PATIENT
  Age: 61 Year
  Sex: Female

DRUGS (1)
  1. TARPEYO [Suspect]
     Active Substance: BUDESONIDE
     Indication: IgA nephropathy
     Dosage: 16 MG ( 4MG CAPSULES) DAILY
     Route: 048
     Dates: start: 20220519

REACTIONS (2)
  - Peripheral swelling [Unknown]
  - Eye swelling [Unknown]
